FAERS Safety Report 4469527-0 (Version None)
Quarter: 2004Q3

REPORT INFORMATION
  Report Type: 
  Country: None (occurrence: None)
  Receive Date: 20040920
  Receipt Date: 20040628
  Transmission Date: 20050211
  Serious: Yes (Hospitalization)
  Sender: FDA-Public Use
  Company Number: PHEH2004US07048

PATIENT
  Sex: Female

DRUGS (2)
  1. ZOMETA [Suspect]
     Indication: MULTIPLE MYELOMA
     Dosage: 4 MG, QMO, INTRAVENOUS
     Route: 042
     Dates: start: 20020607
  2. THALIDOMIDE (THALIDOMIDE) [Concomitant]

REACTIONS (3)
  - OSTEONECROSIS [None]
  - PAIN IN JAW [None]
  - SWELLING [None]
